FAERS Safety Report 5694184-5 (Version None)
Quarter: 2008Q2

REPORT INFORMATION
  Report Type: 
  Country: None (occurrence: None)
  Receive Date: 20080402
  Receipt Date: 20080321
  Transmission Date: 20081010
  Serious: Yes (Hospitalization)
  Sender: FDA-Public Use
  Company Number: 2008BI007798

PATIENT
  Age: 30 Year
  Sex: Female

DRUGS (1)
  1. TYSABRI [Suspect]
     Indication: MULTIPLE SCLEROSIS
     Dosage: 300 MG; QM; IV
     Route: 042
     Dates: start: 20041222

REACTIONS (6)
  - DYSURIA [None]
  - FACIAL PAIN [None]
  - FALL [None]
  - HEADACHE [None]
  - NECK PAIN [None]
  - ORAL CANDIDIASIS [None]
